FAERS Safety Report 12183041 (Version 1)
Quarter: 2016Q1

REPORT INFORMATION
  Report Type: Spontaneous
  Country: GB (occurrence: GB)
  Receive Date: 20160316
  Receipt Date: 20160316
  Transmission Date: 20160526
  Serious: Yes (Other)
  Sender: FDA-Public Use
  Company Number: GB-DRREDDYS-GER/UKI/16/0077857

PATIENT
  Age: 25 Year
  Sex: Female
  Weight: 66.67 kg

DRUGS (2)
  1. PROGESTERONE. [Concomitant]
     Active Substance: PROGESTERONE
     Indication: CONTRACEPTION
  2. FLUOXETINE [Suspect]
     Active Substance: FLUOXETINE HYDROCHLORIDE
     Indication: AFFECT LABILITY
     Route: 048

REACTIONS (9)
  - Feeling hot [Recovered/Resolved]
  - Retching [Recovering/Resolving]
  - Dizziness [Recovered/Resolved with Sequelae]
  - Vertigo [Recovered/Resolved with Sequelae]
  - Nausea [Not Recovered/Not Resolved]
  - Body temperature increased [Recovered/Resolved]
  - Frequent bowel movements [Recovered/Resolved with Sequelae]
  - Dyspepsia [Not Recovered/Not Resolved]
  - Feeling drunk [Recovered/Resolved with Sequelae]

NARRATIVE: CASE EVENT DATE: 20160218
